FAERS Safety Report 8297273-4 (Version None)
Quarter: 2012Q1

REPORT INFORMATION
  Report Type: 
  Country: None (occurrence: None)
  Receive Date: 20120322
  Receipt Date: 20111230
  Transmission Date: 20120608
  Serious: Yes (Death, Hospitalization)
  Sender: FDA-Public Use
  Company Number: UTC-014060

PATIENT
  Age: 58 Year
  Sex: Male
  Weight: 111.3 kg

DRUGS (3)
  1. TYVASO [Suspect]
     Indication: COR PULMONALE CHRONIC
     Dosage: 216 MCG (54 MCG, 4 IN 1 D), INHALATION
     Route: 055
     Dates: start: 20101013
  2. TRACLEER [Concomitant]
  3. REVATIO [Concomitant]

REACTIONS (1)
  - DEATH [None]
